FAERS Safety Report 5476189-2 (Version None)
Quarter: 2007Q4

REPORT INFORMATION
  Report Type: 
  Country: None (occurrence: None)
  Receive Date: 20071003
  Receipt Date: 20070918
  Transmission Date: 20080405
  Serious: Yes (Hospitalization, Disabling)
  Sender: FDA-Public Use
  Company Number: DE-GENENTECH-225625

PATIENT
  Sex: Male
  Weight: 68 kg

DRUGS (6)
  1. BEVACIZUMAB [Suspect]
     Indication: METASTATIC RENAL CELL CARCINOMA
     Dosage: 10 MG/KG, Q2W
     Route: 042
     Dates: start: 20051006, end: 20060522
  2. INTERFERON ALPHA-2A [Suspect]
     Indication: METASTATIC RENAL CELL CARCINOMA
     Dosage: 3000000 IU, 3/WEEK
     Route: 058
     Dates: start: 20051006, end: 20060522
  3. PARACETAMOL [Concomitant]
     Indication: DRUG USE FOR UNKNOWN INDICATION
     Dates: start: 20051006, end: 20060515
  4. ATACAND [Concomitant]
     Indication: DRUG USE FOR UNKNOWN INDICATION
     Dates: start: 20031201, end: 20060115
  5. ZOMETA [Concomitant]
     Indication: DRUG USE FOR UNKNOWN INDICATION
     Dates: start: 20050808, end: 20060418
  6. MOVICOL [Concomitant]
     Indication: DRUG USE FOR UNKNOWN INDICATION
     Dates: start: 20060508

REACTIONS (1)
  - GLIOSIS [None]
